FAERS Safety Report 6246001-2 (Version None)
Quarter: 2009Q2

REPORT INFORMATION
  Report Type: 
  Country: None (occurrence: None)
  Receive Date: 20090626
  Receipt Date: 20081017
  Transmission Date: 20091009
  Serious: No
  Sender: FDA-Public Use
  Company Number: A0752540A

PATIENT
  Sex: Female

DRUGS (12)
  1. IMITREX [Suspect]
     Indication: MIGRAINE
     Dosage: 50MG AS REQUIRED
     Route: 048
     Dates: start: 19980101
  2. OCTREOTIDE ACETATE [Concomitant]
  3. CREON [Concomitant]
  4. ASTELIN [Concomitant]
  5. NASACORT [Concomitant]
  6. SINGULAIR [Concomitant]
  7. VITAMIN B COMPLEX CAP [Concomitant]
  8. TRAMADOL HCL [Concomitant]
  9. VITAMIN E [Concomitant]
  10. CALCIUM [Concomitant]
  11. MAGNESIUM SULFATE [Concomitant]
  12. ZINC [Concomitant]

REACTIONS (1)
  - HEADACHE [None]
